FAERS Safety Report 11595324 (Version 2)
Quarter: 2016Q1

REPORT INFORMATION
  Report Type: Report from Study
  Country: US (occurrence: US)
  Receive Date: 20151006
  Receipt Date: 20160307
  Transmission Date: 20160525
  Serious: No
  Sender: FDA-Public Use
  Company Number: US-AMGEN-USASL2015102175

PATIENT
  Age: 51 Year
  Sex: Female

DRUGS (2)
  1. ENBREL [Suspect]
     Active Substance: ETANERCEPT
     Indication: RHEUMATOID ARTHRITIS
     Dosage: UNK UNK, UNK
     Route: 065
  2. METHOTREXATE [Concomitant]
     Active Substance: METHOTREXATE
     Dosage: 8 PILLS

REACTIONS (7)
  - Pain [Unknown]
  - Nasopharyngitis [Unknown]
  - Malaise [Unknown]
  - Musculoskeletal stiffness [Unknown]
  - Incorrect product storage [Unknown]
  - Limb discomfort [Unknown]
  - Liver function test increased [Unknown]

NARRATIVE: CASE EVENT DATE: 201509
